FAERS Safety Report 25222184 (Version 4)
Quarter: 2025Q2

REPORT INFORMATION
  Report Type: Spontaneous
  Country: IT (occurrence: IT)
  Receive Date: 20250421
  Receipt Date: 20250521
  Transmission Date: 20250717
  Serious: Yes (Other)
  Sender: PFIZER
  Company Number: IT-PFIZER INC-202500074844

PATIENT
  Age: 96 Year
  Sex: Male

DRUGS (5)
  1. TAVOR (LORAZEPAM) [Suspect]
     Active Substance: LORAZEPAM
     Dosage: 20 DROP, DAILY IN THE EVENING
     Dates: start: 2024
  2. TAVOR (LORAZEPAM) [Suspect]
     Active Substance: LORAZEPAM
  3. ALLOPURINOL [Concomitant]
     Active Substance: ALLOPURINOL
     Dosage: 150 MG, IN THE MORNING (ONE AND A HALF TABLETS)
  4. TALOFEN [Concomitant]
     Active Substance: PROMAZINE HYDROCHLORIDE
     Dosage: 4 DROPS AT LUNCH AND 14 DROPS IN THE EVENING
  5. BISOPROLOL [Concomitant]
     Active Substance: BISOPROLOL
     Dosage: 1.25 MG, DAILY IN THE EVENING

REACTIONS (8)
  - Delirium [Unknown]
  - Aggression [Unknown]
  - Somnolence [Unknown]
  - Eye swelling [Unknown]
  - Peripheral swelling [Unknown]
  - Overdose [Unknown]
  - Intentional product misuse [Unknown]
  - Product delivery mechanism issue [Unknown]

NARRATIVE: CASE EVENT DATE: 20250101
